FAERS Safety Report 8888366 (Version 1)
Quarter: 2012Q4

REPORT INFORMATION
  Report Type: 
  Country: US (occurrence: US)
  Receive Date: 20121106
  Receipt Date: 20121106
  Transmission Date: 20130627
  Serious: No
  Sender: FDA-Public Use
  Company Number: US-ASTRAZENECA-2012SE28479

PATIENT
  Sex: Male

DRUGS (7)
  1. ATENOLOL [Suspect]
     Route: 048
  2. ATACAND [Suspect]
     Indication: BLOOD PRESSURE ABNORMAL
     Route: 048
  3. INDAPAMIDE [Concomitant]
  4. PANTOPRAZOLE [Concomitant]
  5. AMIODARONE [Concomitant]
  6. ECOTRIN [Concomitant]
  7. PRAVASTATIN [Concomitant]

REACTIONS (1)
  - Hearing impaired [Unknown]
